FAERS Safety Report 7245186-9 (Version None)
Quarter: 2011Q1

REPORT INFORMATION
  Report Type: 
  Country: None (occurrence: None)
  Receive Date: 20110126
  Receipt Date: 20110119
  Transmission Date: 20110831
  Serious: Yes (Hospitalization)
  Sender: FDA-Public Use
  Company Number: US-AMGEN-USASP2011003361

PATIENT
  Age: 80 Year
  Sex: Male

DRUGS (1)
  1. ENBREL [Suspect]
     Indication: RHEUMATOID ARTHRITIS
     Dates: start: 19990601

REACTIONS (4)
  - INCREASED UPPER AIRWAY SECRETION [None]
  - CORONARY ARTERIAL STENT INSERTION [None]
  - PAIN [None]
  - OEDEMA PERIPHERAL [None]
